FAERS Safety Report 13979808 (Version 1)
Quarter: 2017Q3

REPORT INFORMATION
  Report Type: Spontaneous
  Country: US (occurrence: US)
  Receive Date: 20170914
  Receipt Date: 20170914
  Transmission Date: 20171128
  Serious: No
  Sender: FDA-Public Use
  Company Number: US-ASTELLAS-2017US025830

PATIENT
  Sex: Male

DRUGS (2)
  1. XTANDI [Suspect]
     Active Substance: ENZALUTAMIDE
     Indication: HORMONE-REFRACTORY PROSTATE CANCER
     Route: 048
     Dates: start: 20170110
  2. XTANDI [Suspect]
     Active Substance: ENZALUTAMIDE
     Route: 048
     Dates: start: 20170528

REACTIONS (7)
  - Bone pain [Unknown]
  - Myalgia [Unknown]
  - Pain [Unknown]
  - Groin pain [Unknown]
  - Paraesthesia [Unknown]
  - Muscle spasms [Unknown]
  - Arthralgia [Unknown]
